FAERS Safety Report 18197789 (Version 14)
Quarter: 2025Q4

REPORT INFORMATION
  Report Type: Spontaneous
  Country: US (occurrence: US)
  Receive Date: 20200826
  Receipt Date: 20251023
  Transmission Date: 20260118
  Serious: No
  Sender: PFIZER
  Company Number: US-PFIZER INC-2020328440

PATIENT
  Age: 63 Year
  Sex: Female
  Weight: 65.77 kg

DRUGS (1)
  1. BOSULIF [Suspect]
     Active Substance: BOSUTINIB MONOHYDRATE
     Indication: Chronic myeloid leukaemia
     Dosage: 200 MG, 1X/DAY (2 TABLETS ONCE DAILY)
     Route: 048
     Dates: start: 20160116, end: 202412

REACTIONS (5)
  - Sinusitis [Unknown]
  - Fatigue [Unknown]
  - Immune system disorder [Unknown]
  - Musculoskeletal disorder [Unknown]
  - Arthralgia [Unknown]
